FAERS Safety Report 4433248-0 (Version None)
Quarter: 2004Q3

REPORT INFORMATION
  Report Type: 
  Country: None (occurrence: None)
  Receive Date: 20040824
  Receipt Date: 20040813
  Transmission Date: 20050211
  Serious: No
  Sender: FDA-Public Use
  Company Number: 2004AC00219

PATIENT
  Age: 62 Year
  Sex: Female

DRUGS (1)
  1. MEROPENEM [Suspect]

REACTIONS (1)
  - RESPIRATORY DISTRESS [None]
